FAERS Safety Report 14079318 (Version 3)
Quarter: 2017Q4

REPORT INFORMATION
  Report Type: Report from Study
  Country: CA (occurrence: CA)
  Receive Date: 20171012
  Receipt Date: 20171114
  Transmission Date: 20180321
  Serious: Yes (Other)
  Sender: FDA-Public Use
  Company Number: CA-GLAXOSMITHKLINE-CA2017GSK156616

PATIENT
  Age: 58 Year
  Sex: Female

DRUGS (1)
  1. MEPOLIZUMAB [Suspect]
     Active Substance: MEPOLIZUMAB
     Indication: ASTHMA
     Dosage: 100 MG, Z MONTHLY
     Route: 042

REACTIONS (4)
  - Purpura [Unknown]
  - Oesophageal candidiasis [Unknown]
  - Oesophageal discomfort [Unknown]
  - Disease recurrence [Unknown]

NARRATIVE: CASE EVENT DATE: 201708
